FAERS Safety Report 5792014-4 (Version None)
Quarter: 2008Q2

REPORT INFORMATION
  Report Type: 
  Country: None (occurrence: None)
  Receive Date: 20080625
  Receipt Date: 20080411
  Transmission Date: 20081010
  Serious: No
  Sender: FDA-Public Use
  Company Number: US-WYE-H03566808

PATIENT
  Age: 78 Year
  Sex: Male
  Weight: 83.18 kg

DRUGS (2)
  1. TORISEL [Suspect]
     Indication: RENAL CELL CARCINOMA
     Dosage: 25 MG 1X PER 1 WK, INTRAVENOUS
     Route: 042
     Dates: start: 20080401, end: 20080506
  2. DOXAZOSIN (DOXAZOSIN) [Concomitant]

REACTIONS (2)
  - DERMATITIS ACNEIFORM [None]
  - RASH PUSTULAR [None]
